FAERS Safety Report 5831394-8 (Version None)
Quarter: 2008Q3

REPORT INFORMATION
  Report Type: 
  Country: None (occurrence: None)
  Receive Date: 20080801
  Receipt Date: 20080721
  Transmission Date: 20090109
  Serious: Yes (Death, Other)
  Sender: FDA-Public Use
  Company Number: US-PFIZER INC-2008036462

PATIENT
  Sex: Male
  Weight: 95.3 kg

DRUGS (6)
  1. SUTENT [Suspect]
     Indication: RENAL CANCER
     Route: 048
     Dates: start: 20070801, end: 20080501
  2. LIPITOR [Concomitant]
  3. OMEPRAZOLE [Concomitant]
  4. BENAZEPRIL HYDROCHLORIDE [Concomitant]
  5. TRAMADOL HCL [Concomitant]
  6. ACETAMINOPHEN [Concomitant]

REACTIONS (7)
  - DEATH [None]
  - DISEASE PROGRESSION [None]
  - DYSGEUSIA [None]
  - FATIGUE [None]
  - HIATUS HERNIA [None]
  - HYPERTENSION [None]
  - RENAL CANCER [None]
